FAERS Safety Report 5369870-7 (Version None)
Quarter: 2007Q2

REPORT INFORMATION
  Report Type: 
  Country: None (occurrence: None)
  Receive Date: 20070621
  Receipt Date: 20070606
  Transmission Date: 20071010
  Serious: Yes (Life-Threatening)
  Sender: FDA-Public Use
  Company Number: 2007RR-08000

PATIENT
  Age: 25 Year
  Sex: Male
  Weight: 93 kg

DRUGS (4)
  1. FLUOXETINE [Suspect]
     Indication: DEPRESSION
     Dosage: 20 MG, UNK, ORAL
     Route: 048
     Dates: start: 20070425, end: 20070430
  2. CITALOPRAM HYDROBROMIDE [Concomitant]
  3. DICLOFENAC SODIUM [Concomitant]
  4. NICORETTE [Concomitant]

REACTIONS (4)
  - FACE OEDEMA [None]
  - OEDEMA PERIPHERAL [None]
  - RASH [None]
  - SWELLING FACE [None]
